FAERS Safety Report 9713712 (Version 1)
Quarter: 2013Q4

REPORT INFORMATION
  Report Type: Spontaneous
  Country: US (occurrence: US)
  Receive Date: 20131126
  Receipt Date: 20131126
  Transmission Date: 20140711
  Serious: Yes (Other)
  Sender: FDA-Public Use
  Company Number: US-PFIZER INC-2013333509

PATIENT
  Sex: Female

DRUGS (3)
  1. XALATAN [Suspect]
     Indication: OPEN ANGLE GLAUCOMA
     Dosage: UNK
  2. XALATAN [Suspect]
     Dosage: UNK
     Dates: start: 2013
  3. LATANOPROST [Suspect]
     Indication: OPEN ANGLE GLAUCOMA
     Dosage: UNK

REACTIONS (6)
  - Blindness [Unknown]
  - Hypertension [Unknown]
  - Vision blurred [Unknown]
  - Eye irritation [Unknown]
  - Heart rate increased [Unknown]
  - Intraocular pressure increased [Unknown]
